FAERS Safety Report 13131861 (Version 2)
Quarter: 2017Q1

REPORT INFORMATION
  Report Type: Report from Study
  Country: CN (occurrence: CN)
  Receive Date: 20170119
  Receipt Date: 20170126
  Transmission Date: 20170428
  Serious: Yes (Hospitalization)
  Sender: FDA-Public Use
  Company Number: CN-BAUSCH-BL-2017-001313

PATIENT
  Age: 24 Year
  Sex: Female
  Weight: 216.1 kg

DRUGS (4)
  1. VERTEPORFIN [Suspect]
     Active Substance: VERTEPORFIN
     Route: 050
     Dates: start: 20140917
  2. VERTEPORFIN [Suspect]
     Active Substance: VERTEPORFIN
     Route: 050
     Dates: start: 20150603, end: 20150603
  3. VERTEPORFIN [Suspect]
     Active Substance: VERTEPORFIN
     Indication: VISUAL IMPAIRMENT
     Route: 050
     Dates: start: 20140813
  4. VERTEPORFIN [Suspect]
     Active Substance: VERTEPORFIN
     Route: 050
     Dates: start: 20141015

REACTIONS (1)
  - Endophthalmitis [Unknown]

NARRATIVE: CASE EVENT DATE: 20150606
